FAERS Safety Report 7736990-9 (Version None)
Quarter: 2011Q3

REPORT INFORMATION
  Report Type: 
  Country: None (occurrence: None)
  Receive Date: 20110908
  Receipt Date: 20110825
  Transmission Date: 20111222
  Serious: Yes (Other)
  Sender: FDA-Public Use
  Company Number: US-ELI_LILLY_AND_COMPANY-US201107005426

PATIENT
  Sex: Female

DRUGS (2)
  1. FORTEO [Suspect]
     Indication: OSTEOPOROSIS
     Dosage: 20 UG, QD
     Route: 065
  2. FORTEO [Suspect]
     Dosage: 20 UG, QD

REACTIONS (6)
  - BONE PAIN [None]
  - EYE OPERATION [None]
  - INJECTION SITE HAEMATOMA [None]
  - NAUSEA [None]
  - HOT FLUSH [None]
  - AUTOIMMUNE DISORDER [None]
